FAERS Safety Report 8503638-5 (Version None)
Quarter: 2012Q3

REPORT INFORMATION
  Report Type: 
  Country: None (occurrence: None)
  Receive Date: 20120711
  Receipt Date: 20120626
  Transmission Date: 20120928
  Serious: Yes (Hospitalization)
  Sender: FDA-Public Use
  Company Number: US-WATSON-2012-11081

PATIENT
  Age: 23 Year
  Sex: Female

DRUGS (1)
  1. OXYCODONE HCL AND ACETAMINOPHEN [Suspect]
     Indication: INTENTIONAL OVERDOSE
     Dosage: 90 TABLETS SINGLE INGESTION
     Route: 048

REACTIONS (7)
  - BRAIN OEDEMA [None]
  - OVERDOSE [None]
  - RENAL FAILURE ACUTE [None]
  - ACUTE HEPATIC FAILURE [None]
  - COMA [None]
  - INTRACRANIAL PRESSURE INCREASED [None]
  - BRAIN HERNIATION [None]
